FAERS Safety Report 10650965 (Version 1)
Quarter: 2014Q4

REPORT INFORMATION
  Report Type: Report from Study
  Country: DE (occurrence: DE)
  Receive Date: 20141215
  Receipt Date: 20141215
  Transmission Date: 20150529
  Serious: Yes (Death)
  Sender: FDA-Public Use
  Company Number: DE-BEH-2014047007

PATIENT
  Age: 28 Year
  Sex: Male
  Weight: 86 kg

DRUGS (6)
  1. PRIVIGEN [Suspect]
     Active Substance: HUMAN IMMUNOGLOBULIN G
     Dosage: INFUSION RATE MIN. 0.3, MAX. 4.8 ML/MIN
     Route: 042
     Dates: start: 20140723, end: 20140723
  2. PRIVIGEN [Suspect]
     Active Substance: HUMAN IMMUNOGLOBULIN G
     Dosage: INFUSION RATE MIN. 0.3, MAX. 4.8 ML/MIN
     Route: 042
     Dates: start: 20140522, end: 20140522
  3. PRIVIGEN [Suspect]
     Active Substance: HUMAN IMMUNOGLOBULIN G
     Dosage: INFUSION RATE MIN. 0.3, MAX. 4.8 ML/MIN
     Route: 042
     Dates: start: 20140422, end: 20140422
  4. PRIVIGEN [Suspect]
     Active Substance: HUMAN IMMUNOGLOBULIN G
     Dosage: INFUSION RATE MIN. 0.3, MAX. 4.8 ML/MIN
     Route: 042
     Dates: start: 20140902, end: 20140902
  5. PRIVIGEN [Suspect]
     Active Substance: HUMAN IMMUNOGLOBULIN G
     Dosage: INFUSION RATE MIN. 0.3, MAX. 4.8 ML/MIN
     Route: 042
     Dates: start: 20140626, end: 20140626
  6. PRIVIGEN [Suspect]
     Active Substance: HUMAN IMMUNOGLOBULIN G
     Dosage: INFUSION RATE MIN. 0.3, MAX. 4.8 ML/MIN
     Route: 042
     Dates: start: 20140930, end: 20140930

REACTIONS (1)
  - Death [Fatal]
